FAERS Safety Report 13413592 (Version 1)
Quarter: 2017Q2

REPORT INFORMATION
  Report Type: Spontaneous
  Country: PH (occurrence: PH)
  Receive Date: 20170407
  Receipt Date: 20170407
  Transmission Date: 20170830
  Serious: Yes (Hospitalization)
  Sender: FDA-Public Use
  Company Number: PH-PFIZER INC-2016386937

PATIENT
  Age: 46 Year
  Sex: Female

DRUGS (2)
  1. LYRICA [Suspect]
     Active Substance: PREGABALIN
     Indication: NEURALGIA
     Dosage: 75 MG, 1X/DAY AT BEDTIME
     Route: 048
     Dates: start: 20160808, end: 20160810
  2. ZERODOL /01140001/ [Concomitant]
     Indication: ANALGESIC THERAPY
     Dosage: 200 MG, 1X/DAY
     Route: 048
     Dates: start: 20160808, end: 20160809

REACTIONS (6)
  - Dysarthria [Recovered/Resolved with Sequelae]
  - Lacunar infarction [Recovered/Resolved with Sequelae]
  - Dizziness [Recovered/Resolved with Sequelae]
  - Facial asymmetry [Recovered/Resolved with Sequelae]
  - Vision blurred [Recovered/Resolved with Sequelae]
  - Asthenia [Recovered/Resolved with Sequelae]

NARRATIVE: CASE EVENT DATE: 20160810
